FAERS Safety Report 17524600 (Version 1)
Quarter: 2020Q1

REPORT INFORMATION
  Report Type: Spontaneous
  Country: FR (occurrence: FR)
  Receive Date: 20200311
  Receipt Date: 20200311
  Transmission Date: 20200409
  Serious: Yes (Hospitalization)
  Sender: FDA-Public Use
  Company Number: FR-TEVA-2020-FR-1196847

PATIENT
  Age: 44 Year
  Sex: Female
  Weight: 81 kg

DRUGS (25)
  1. FLUDARABINE TEVA [Suspect]
     Active Substance: FLUDARABINE PHOSPHATE
     Indication: ACUTE LYMPHOCYTIC LEUKAEMIA
     Dosage: 57.25 MG
     Route: 041
     Dates: start: 20190829, end: 20190901
  2. ORACILLINE [Concomitant]
     Active Substance: PENICILLIN V
  3. ACICLOVIR MYLAN 250 MG, POUDRE POUR SOLUTION INJECTABLE (IV) [Concomitant]
  4. PROGRAF [Suspect]
     Active Substance: TACROLIMUS
     Indication: PROPHYLAXIS AGAINST TRANSPLANT REJECTION
     Route: 041
     Dates: start: 20190905, end: 20191218
  5. CYMEVAN [Concomitant]
     Active Substance: GANCICLOVIR
  6. JAKAVI [Concomitant]
     Active Substance: RUXOLITINIB
  7. VALACICLOVIR [Concomitant]
     Active Substance: VALACYCLOVIR HYDROCHLORIDE
  8. CASPOFUNGINE MYLAN [Concomitant]
     Active Substance: CASPOFUNGIN ACETATE
  9. MEROPENEM ARROW [Concomitant]
     Active Substance: MEROPENEM
  10. PIPERACILLIN AND TAZOBACTAM [Concomitant]
     Active Substance: PIPERACILLIN SODIUM\TAZOBACTAM SODIUM
  11. PANTOPRAZOLE [Concomitant]
     Active Substance: PANTOPRAZOLE
  12. METHOTREXATE. [Suspect]
     Active Substance: METHOTREXATE
     Indication: ACUTE LYMPHOCYTIC LEUKAEMIA
     Route: 041
     Dates: start: 20191213, end: 20200210
  13. ROVALCYTE [Concomitant]
     Active Substance: VALGANCICLOVIR HYDROCHLORIDE
  14. GRAFALON [Concomitant]
     Active Substance: LAPINE T-LYMPHOCYTE IMMUNE GLOBULIN
  15. SOLU-MEDROL [Concomitant]
     Active Substance: METHYLPREDNISOLONE SODIUM SUCCINATE
  16. NOXAFIL [Concomitant]
     Active Substance: POSACONAZOLE
  17. SANDIMMUN [Concomitant]
     Active Substance: CYCLOSPORINE
  18. HEPARIN [Concomitant]
     Active Substance: HEPARIN SODIUM
  19. CEFTRIAXONE BASE [Concomitant]
     Active Substance: CEFTRIAXONE
  20. SOLUPRED [Concomitant]
  21. METRONIDAZOLE B BRAUN [Concomitant]
     Active Substance: METRONIDAZOLE
  22. ONDANSETRON [Concomitant]
     Active Substance: ONDANSETRON
  23. LOXEN [Concomitant]
  24. LEVOTHYROX [Concomitant]
     Active Substance: LEVOTHYROXINE
  25. FLUCONAZOLE KABI 2 MG/ML, SOLUTION POUR PERFUSION [Concomitant]

REACTIONS (2)
  - Leukoencephalopathy [Not Recovered/Not Resolved]
  - Coma [Recovered/Resolved]

NARRATIVE: CASE EVENT DATE: 20191219
